FAERS Safety Report 7225748-5 (Version None)
Quarter: 2011Q1

REPORT INFORMATION
  Report Type: 
  Country: None (occurrence: None)
  Receive Date: 20110113
  Receipt Date: 20101217
  Transmission Date: 20110831
  Serious: No
  Sender: FDA-Public Use
  Company Number: US-NOVEN-10US001435

PATIENT
  Age: 81 Year
  Sex: Male

DRUGS (4)
  1. FENTANYL-100 [Suspect]
     Indication: LIMB INJURY
     Dosage: 100 UG/HR EVERY 72 HOURS
     Route: 062
  2. FENTANYL-100 [Suspect]
     Indication: NERVE INJURY
  3. FENTANYL-100 [Suspect]
     Indication: FINGER AMPUTATION
  4. BLOOD PRESSURE MEDICATION [Concomitant]
     Indication: BLOOD PRESSURE INCREASED
     Dosage: UNK
     Route: 048
     Dates: start: 20050101

REACTIONS (3)
  - INADEQUATE ANALGESIA [None]
  - PRODUCT QUALITY ISSUE [None]
  - DRUG ADMINISTRATION ERROR [None]
